FAERS Safety Report 11935972 (Version 1)
Quarter: 2016Q1

REPORT INFORMATION
  Report Type: Spontaneous
  Country: US (occurrence: US)
  Receive Date: 20160121
  Receipt Date: 20160121
  Transmission Date: 20160526
  Serious: No
  Sender: FDA-Public Use
  Company Number: US-AMGEN-USASP2015119823

PATIENT
  Sex: Female

DRUGS (5)
  1. VELCADE [Concomitant]
     Active Substance: BORTEZOMIB
     Dosage: UNK
  2. KYPROLIS [Suspect]
     Active Substance: CARFILZOMIB
     Indication: LIGHT CHAIN ANALYSIS INCREASED
     Dosage: 20 MG/M2, QWK
     Route: 065
  3. POMALYST [Concomitant]
     Active Substance: POMALIDOMIDE
     Dosage: UNK
  4. DEXAMETHASONE. [Concomitant]
     Active Substance: DEXAMETHASONE
     Dosage: 10 MG, QWK
  5. REVLIMID [Concomitant]
     Active Substance: LENALIDOMIDE
     Dosage: UNK

REACTIONS (3)
  - Drug effect decreased [Unknown]
  - Anaemia [Unknown]
  - Oedema peripheral [Unknown]
